FAERS Safety Report 8933835 (Version 2)
Quarter: 2012Q4

REPORT INFORMATION
  Report Type: 
  Country: DE (occurrence: DE)
  Receive Date: 20121129
  Receipt Date: 20121226
  Transmission Date: 20130627
  Serious: Yes (Other)
  Sender: FDA-Public Use
  Company Number: DE-JNJFOC-20121114150

PATIENT
  Age: 24 Year
  Sex: Male

DRUGS (2)
  1. REGAINE MAENNER SCHAUM [Suspect]
     Route: 061
  2. REGAINE MAENNER SCHAUM [Suspect]
     Indication: ALOPECIA
     Route: 061
     Dates: start: 20121107, end: 20121110

REACTIONS (2)
  - Asthma [Recovered/Resolved]
  - Hypersensitivity [Recovered/Resolved]
